FAERS Safety Report 25761510 (Version 1)
Quarter: 2025Q3

REPORT INFORMATION
  Report Type: Spontaneous
  Country: US (occurrence: US)
  Receive Date: 20250904
  Receipt Date: 20250904
  Transmission Date: 20251021
  Serious: No
  Sender: MEDEXUS PHARMA
  Company Number: US-MEDEXUS PHARMA, INC.-2024MED00398

PATIENT
  Sex: Female
  Weight: 95.254 kg

DRUGS (4)
  1. RASUVO [Suspect]
     Active Substance: METHOTREXATE SODIUM
     Indication: Polymyositis
     Dosage: 1X/WEEK TO ALTERNATES BETWEEN LEFT AND RIGHT THIGH
     Route: 058
     Dates: start: 1995
  2. RASUVO [Suspect]
     Active Substance: METHOTREXATE SODIUM
     Dosage: 1X/WEEK TO ALTERNATES BETWEEN LEFT AND RIGHT THIGH
     Route: 058
  3. INSULIN NOS [Concomitant]
     Active Substance: INSULIN NOS
  4. METHOTREXATE [Concomitant]
     Active Substance: METHOTREXATE
     Route: 048

REACTIONS (7)
  - Gastrointestinal pain [Not Recovered/Not Resolved]
  - Migraine [Unknown]
  - Injection site pain [Not Recovered/Not Resolved]
  - Headache [Not Recovered/Not Resolved]
  - Diarrhoea [Not Recovered/Not Resolved]
  - Infection [Recovered/Resolved]
  - Off label use [Not Recovered/Not Resolved]

NARRATIVE: CASE EVENT DATE: 19950101
